FAERS Safety Report 19620433 (Version 2)
Quarter: 2021Q4

REPORT INFORMATION
  Report Type: Other
  Country: DE (occurrence: None)
  Receive Date: 20210728
  Receipt Date: 20211206
  Transmission Date: 20220303
  Serious: Yes (Other)
  Sender: FDA-Public Use
  Company Number: DE-ROCHE-2874520

PATIENT
  Age: 68 Year
  Sex: Male
  Weight: 65 kg

DRUGS (3)
  1. ATEZOLIZUMAB [Suspect]
     Active Substance: ATEZOLIZUMAB
     Indication: Hepatocellular carcinoma
     Dosage: ON 14/JUN/2021, RECEIVED LAST DOSE OF ATEZOLIZUMAB PRIOR TO ADVERSE EVENT
     Route: 041
     Dates: start: 20210301
  2. BEVACIZUMAB [Suspect]
     Active Substance: BEVACIZUMAB
     Indication: Hepatocellular carcinoma
     Dosage: ON 14/JUN/2021, RECEIVED LAST DOSE OF BEVACIZUMAB 1040 MG PRIOR TO ADVERSE EVENT
     Route: 065
     Dates: start: 20210301
  3. TINZAPARIN SODIUM [Concomitant]
     Active Substance: TINZAPARIN SODIUM
     Dates: start: 20210301

REACTIONS (2)
  - Metastases to abdominal wall [Not Recovered/Not Resolved]
  - Metastases to peritoneum [Not Recovered/Not Resolved]

NARRATIVE: CASE EVENT DATE: 20210630
